FAERS Safety Report 4855963-7 (Version None)
Quarter: 2005Q4

REPORT INFORMATION
  Report Type: 
  Country: None (occurrence: None)
  Receive Date: 20051216
  Receipt Date: 20051215
  Transmission Date: 20060501
  Serious: Yes (Other)
  Sender: FDA-Public Use
  Company Number: US-GLAXOSMITHKLINE-A0585991A

PATIENT
  Age: 32 Year
  Sex: Female

DRUGS (7)
  1. WELLBUTRIN [Suspect]
     Indication: DEPRESSION
     Dosage: 450MG PER DAY
     Route: 048
  2. ZOVIRAX [Suspect]
     Indication: HERPES SIMPLEX
  3. REQUIP [Suspect]
     Indication: RESTLESS LEGS SYNDROME
     Dosage: 1MG PER DAY
     Route: 048
  4. GEODON [Concomitant]
  5. NEURONTIN [Concomitant]
  6. ZANAFLEX [Concomitant]
  7. METHADONE [Concomitant]

REACTIONS (1)
  - DEAFNESS [None]
